FAERS Safety Report 9798149 (Version 1)
Quarter: 2014Q1

REPORT INFORMATION
  Report Type: Spontaneous
  Country: IT (occurrence: IT)
  Receive Date: 20140106
  Receipt Date: 20140106
  Transmission Date: 20141002
  Serious: Yes (Hospitalization)
  Sender: FDA-Public Use
  Company Number: PHHY2013IT153670

PATIENT
  Sex: Female

DRUGS (1)
  1. AMOXICILLIN [Suspect]
     Indication: URINARY TRACT INFECTION
     Dosage: 15 ML, QD
     Route: 048
     Dates: start: 20131121, end: 20131128

REACTIONS (2)
  - Dysphonia [Recovered/Resolved]
  - Diarrhoea [Recovered/Resolved]
